FAERS Safety Report 9091289 (Version 2)
Quarter: 2013Q1

REPORT INFORMATION
  Report Type: Spontaneous
  Country: IT (occurrence: IT)
  Receive Date: 20130201
  Receipt Date: 20130228
  Transmission Date: 20140127
  Serious: Yes (Death)
  Sender: FDA-Public Use
  Company Number: IT-BRISTOL-MYERS SQUIBB COMPANY-17314907

PATIENT
  Age: 81 Year
  Sex: Male

DRUGS (13)
  1. COUMADIN TABS 5 MG [Suspect]
     Indication: CEREBROVASCULAR ACCIDENT
     Route: 048
     Dates: start: 20110101, end: 20121227
  2. TICLOPIDINE HYDROCHLORIDE [Suspect]
     Indication: CEREBROVASCULAR ACCIDENT
     Route: 048
     Dates: start: 20110101, end: 20121227
  3. DILATREND [Concomitant]
     Dosage: 6.25MG 1/2 CAPS*2
  4. CARDURA [Concomitant]
     Dosage: 2MG 1CAPS*2
  5. CRESTOR [Concomitant]
     Dosage: 1 CAPS
  6. LASIX [Concomitant]
     Dosage: 25MG 1 CAPS
  7. REMERON [Concomitant]
     Dosage: 1 CAPS
  8. OMNIC [Concomitant]
     Dosage: CAPS
  9. ROFLUMILAST [Concomitant]
     Dosage: 1 CAPS
  10. NITRODERM [Concomitant]
  11. ANTRA [Concomitant]
     Dosage: 1 CAPS
  12. SPIRIVA [Concomitant]
     Dosage: 1 CAPS
  13. DELTACORTENE [Concomitant]
     Dosage: CAPS

REACTIONS (3)
  - Aortic aneurysm rupture [Fatal]
  - Shock haemorrhagic [Fatal]
  - Ischaemic stroke [Fatal]
